FAERS Safety Report 18462706 (Version 2)
Quarter: 2020Q4

REPORT INFORMATION
  Report Type: Spontaneous
  Country: US (occurrence: US)
  Receive Date: 20201104
  Receipt Date: 20201116
  Transmission Date: 20210114
  Serious: No
  Sender: FDA-Public Use
  Company Number: US-GLAXOSMITHKLINE-US2020AMR217212

PATIENT
  Sex: Female

DRUGS (1)
  1. ZEJULA [Suspect]
     Active Substance: NIRAPARIB
     Indication: OVARIAN CANCER
     Dosage: 200 MG, QD
     Route: 065
     Dates: start: 20201018

REACTIONS (8)
  - Pain [Unknown]
  - Myalgia [Unknown]
  - Erythema [Unknown]
  - Constipation [Not Recovered/Not Resolved]
  - Hysterectomy [Unknown]
  - Arthralgia [Not Recovered/Not Resolved]
  - Stomatitis [Unknown]
  - Haemoptysis [Unknown]
